FAERS Safety Report 5034514-0 (Version None)
Quarter: 2006Q2

REPORT INFORMATION
  Report Type: 
  Country: None (occurrence: None)
  Receive Date: 20060623
  Receipt Date: 20060623
  Transmission Date: 20061013
  Serious: No
  Sender: FDA-Public Use
  Company Number: None

PATIENT
  Age: 66 Year
  Sex: Female
  Weight: 82 kg

DRUGS (5)
  1. VELCADE [Suspect]
     Indication: MULTIPLE MYELOMA
     Dosage: 2.6 MG IV D1,4,8,11
     Route: 042
     Dates: start: 20060220, end: 20060302
  2. VELCADE [Suspect]
     Indication: MULTIPLE MYELOMA
     Dosage: 2.6 MG IV D1,4,8,11
     Route: 042
     Dates: start: 20060313, end: 20060320
  3. VELCADE [Suspect]
     Indication: MULTIPLE MYELOMA
     Dosage: 2.6 MG IV D1,4,8,11
     Route: 042
     Dates: start: 20060403, end: 20060420
  4. VELCADE [Suspect]
     Indication: MULTIPLE MYELOMA
     Dosage: 2.6 MG IV D1,4,8,11
     Route: 042
     Dates: start: 20060501, end: 20060504
  5. DEXAMETHASONE TAB [Concomitant]

REACTIONS (10)
  - DYSPHAGIA [None]
  - EYE INFECTION [None]
  - EYE OPERATION [None]
  - FATIGUE [None]
  - FLANK PAIN [None]
  - HELICOBACTER GASTRITIS [None]
  - NAUSEA [None]
  - NEUTROPENIA [None]
  - THERAPY NON-RESPONDER [None]
  - WEIGHT DECREASED [None]
